FAERS Safety Report 5910795-3 (Version None)
Quarter: 2008Q4

REPORT INFORMATION
  Report Type: 
  Country: None (occurrence: None)
  Receive Date: 20081007
  Receipt Date: 20080507
  Transmission Date: 20090506
  Serious: No
  Sender: FDA-Public Use
  Company Number: US-ASTRAZENECA-2008UW09382

PATIENT
  Age: 61 Year
  Sex: Female
  Weight: 99.8 kg

DRUGS (2)
  1. ARIMIDEX [Suspect]
     Indication: BREAST CANCER
  2. SYNTHROID [Concomitant]

REACTIONS (4)
  - ARTHRALGIA [None]
  - FATIGUE [None]
  - HEART RATE IRREGULAR [None]
  - OEDEMA PERIPHERAL [None]
